FAERS Safety Report 7084596-X (Version None)
Quarter: 2010Q4

REPORT INFORMATION
  Report Type: 
  Country: None (occurrence: None)
  Receive Date: 20101104
  Receipt Date: 20101022
  Transmission Date: 20110411
  Serious: Yes (Other)
  Sender: FDA-Public Use
  Company Number: PHHY2010JP71695

PATIENT
  Age: 57 Year
  Sex: Male

DRUGS (2)
  1. TEGRETOL [Suspect]
     Dosage: 100 MG, BID
     Route: 048
  2. TERNELIN [Suspect]
     Dosage: 1 DF, BID
     Route: 048

REACTIONS (2)
  - DIZZINESS [None]
  - MENIERE'S DISEASE [None]
